FAERS Safety Report 8355587-3 (Version None)
Quarter: 2012Q2

REPORT INFORMATION
  Report Type: 
  Country: None (occurrence: None)
  Receive Date: 20120514
  Receipt Date: 20120504
  Transmission Date: 20120825
  Serious: Yes (Hospitalization)
  Sender: FDA-Public Use
  Company Number: DE-TEVA-336741GER

PATIENT
  Sex: Female
  Weight: 77 kg

DRUGS (4)
  1. LAPATINIB [Suspect]
     Indication: BREAST CANCER
     Route: 048
     Dates: start: 20120112
  2. DOXORUBICIN HCL [Suspect]
     Indication: BREAST CANCER
     Route: 042
     Dates: start: 20120112
  3. PACLITAXEL [Suspect]
     Indication: BREAST CANCER
     Dosage: 11.4286 MG/M2;
     Route: 042
     Dates: start: 20120112
  4. TRASTUZUMAB [Suspect]
     Indication: BREAST CANCER
     Dosage: .2857 MG/KG;
     Route: 042
     Dates: start: 20120112

REACTIONS (1)
  - PALMAR-PLANTAR ERYTHRODYSAESTHESIA SYNDROME [None]
